FAERS Safety Report 8758709 (Version 1)
Quarter: 2012Q4

REPORT INFORMATION
  Report Type: 
  Country: US (occurrence: US)
  Receive Date: 20120829
  Receipt Date: 20120829
  Transmission Date: 20130627
  Serious: Yes (Hospitalization, Disabling, Other)
  Sender: FDA-Public Use
  Company Number: US-AMGEN-USASP2012053910

PATIENT
  Age: 42 Year
  Sex: Female
  Weight: 122.45 kg

DRUGS (3)
  1. PROCRIT [Suspect]
     Indication: ANAEMIA
     Dosage: 40000 IU, qwk
     Route: 058
     Dates: start: 201206
  2. PROCRIT [Suspect]
     Dosage: UNK
     Route: 058
     Dates: start: 2002, end: 2002
  3. PREDNISONE [Concomitant]
     Indication: LUNG DISORDER
     Dosage: UNK
     Route: 048

REACTIONS (11)
  - Diabetes mellitus [Not Recovered/Not Resolved]
  - Glaucoma [Recovered/Resolved]
  - Cataract [Recovered/Resolved]
  - Diabetic foot [Not Recovered/Not Resolved]
  - Activities of daily living impaired [Not Recovered/Not Resolved]
  - Dyspnoea [Recovered/Resolved]
  - Orthopnoea [Not Recovered/Not Resolved]
  - Lung disorder [Not Recovered/Not Resolved]
  - Drug administration error [Not Recovered/Not Resolved]
  - Needle issue [Not Recovered/Not Resolved]
  - Anaemia [Not Recovered/Not Resolved]
